FAERS Safety Report 10761523 (Version 2)
Quarter: 2015Q1

REPORT INFORMATION
  Report Type: Spontaneous
  Country: CA (occurrence: CA)
  Receive Date: 20150204
  Receipt Date: 20150212
  Transmission Date: 20150721
  Serious: Yes (Other)
  Sender: FDA-Public Use
  Company Number: CA-PFIZER INC-2015043018

PATIENT
  Age: 70 Year
  Sex: Male

DRUGS (2)
  1. BENEFIX [Suspect]
     Active Substance: COAGULATION FACTOR IX RECOMBINANT HUMAN\ISOPROPYL ALCOHOL
     Dosage: UNK
  2. BENEFIX [Suspect]
     Active Substance: COAGULATION FACTOR IX RECOMBINANT HUMAN\ISOPROPYL ALCOHOL
     Indication: FACTOR IX DEFICIENCY
     Dosage: 2500 IU, 2X/WEEK
     Route: 042
     Dates: start: 20140416

REACTIONS (1)
  - Haematuria [Unknown]

NARRATIVE: CASE EVENT DATE: 20150127
